FAERS Safety Report 4865482-X (Version None)
Quarter: 2005Q4

REPORT INFORMATION
  Report Type: 
  Country: None (occurrence: None)
  Receive Date: 20051223
  Receipt Date: 20051219
  Transmission Date: 20060501
  Serious: Yes (Hospitalization)
  Sender: FDA-Public Use
  Company Number: GB-ROCHE-429042

PATIENT
  Age: 58 Year
  Sex: Female

DRUGS (6)
  1. CAPECITABINE [Suspect]
     Dosage: UNREPORTED FREQUENCY
     Route: 048
     Dates: start: 20051201
  2. OXALIPLATIN [Suspect]
     Dosage: UNREPORTED FREQUENCY
     Route: 042
     Dates: start: 20051201
  3. PENICILLIN [Concomitant]
     Route: 048
     Dates: start: 20040215
  4. SALBUTAMOL [Concomitant]
     Dates: start: 20041215
  5. BECOTIDE [Concomitant]
     Dates: start: 20041115
  6. RAMIPRIL [Concomitant]
     Route: 048
     Dates: start: 20050615

REACTIONS (1)
  - LARYNGOSPASM [None]
